FAERS Safety Report 12124217 (Version 2)
Quarter: 2016Q1

REPORT INFORMATION
  Report Type: Report from Study
  Country: US (occurrence: US)
  Receive Date: 20160229
  Receipt Date: 20160301
  Transmission Date: 20160526
  Serious: Yes (Other)
  Sender: FDA-Public Use
  Company Number: US-BAYER-2016-035755

PATIENT
  Age: 46 Year
  Sex: Female

DRUGS (1)
  1. STIVARGA [Suspect]
     Active Substance: REGORAFENIB
     Indication: COLON CANCER
     Dosage: 80 MG, QD (2-40MG TABLETS DAILY)
     Route: 048
     Dates: start: 20160129, end: 20160212

REACTIONS (2)
  - Rash generalised [None]
  - Urticaria [None]

NARRATIVE: CASE EVENT DATE: 201602
